FAERS Safety Report 20327227 (Version 1)
Quarter: 2022Q1

REPORT INFORMATION
  Report Type: Report from Study
  Country: IT (occurrence: IT)
  Receive Date: 20220112
  Receipt Date: 20220112
  Transmission Date: 20220424
  Serious: Yes (Other)
  Sender: FDA-Public Use
  Company Number: IT-MYLANLABS-2022M1002323

PATIENT

DRUGS (3)
  1. CASPOFUNGIN [Interacting]
     Active Substance: CASPOFUNGIN
     Indication: Antifungal prophylaxis
     Dosage: UNK
     Route: 065
  2. MIDOSTAURIN [Interacting]
     Active Substance: MIDOSTAURIN
     Indication: Acute myeloid leukaemia
     Dosage: UNK
     Route: 065
  3. MIDOSTAURIN [Interacting]
     Active Substance: MIDOSTAURIN
     Indication: FLT3 gene mutation

REACTIONS (2)
  - Electrocardiogram QT prolonged [Unknown]
  - Drug interaction [Unknown]
